FAERS Safety Report 7197202-0 (Version None)
Quarter: 2010Q4

REPORT INFORMATION
  Report Type: 
  Country: None (occurrence: None)
  Receive Date: 20101224
  Receipt Date: 20101210
  Transmission Date: 20110411
  Serious: Yes (Other)
  Sender: FDA-Public Use
  Company Number: PHHY2010FR87052

PATIENT
  Sex: Female

DRUGS (3)
  1. SANDOSTATIN LAR [Suspect]
     Indication: ACROMEGALY
     Dosage: 20 MG, QMO
     Dates: start: 19990101
  2. SANDOSTATIN LAR [Suspect]
     Dosage: 30 MG, QMO
  3. NORPROLAC [Concomitant]
     Indication: ACROMEGALY
     Dosage: 75 MG DAILY

REACTIONS (3)
  - ABORTION INDUCED [None]
  - DRUG EXPOSURE DURING PREGNANCY [None]
  - PITUITARY TUMOUR REMOVAL [None]
